FAERS Safety Report 7768855-0 (Version None)
Quarter: 2011Q3

REPORT INFORMATION
  Report Type: 
  Country: None (occurrence: None)
  Receive Date: 20110922
  Receipt Date: 20101227
  Transmission Date: 20111222
  Serious: No
  Sender: FDA-Public Use
  Company Number: US-ASTRAZENECA-2010SE58711

PATIENT
  Age: 48 Year
  Sex: Male
  Weight: 88.5 kg

DRUGS (6)
  1. SEROQUEL [Suspect]
     Route: 048
     Dates: end: 20101207
  2. SEROQUEL [Suspect]
     Route: 048
  3. SEROQUEL [Suspect]
     Indication: SCHIZOAFFECTIVE DISORDER
     Route: 048
     Dates: start: 20101001
  4. SEROQUEL [Suspect]
     Indication: BIPOLAR DISORDER
     Route: 048
     Dates: start: 20101001
  5. SEROQUEL [Suspect]
     Route: 048
  6. SEROQUEL [Suspect]
     Route: 048
     Dates: end: 20101207

REACTIONS (6)
  - WEIGHT INCREASED [None]
  - ATTENTION DEFICIT/HYPERACTIVITY DISORDER [None]
  - TACHYPHRENIA [None]
  - OBSESSIVE-COMPULSIVE DISORDER [None]
  - DRUG DOSE OMISSION [None]
  - MALAISE [None]
